FAERS Safety Report 14403582 (Version 1)
Quarter: 2018Q1

REPORT INFORMATION
  Report Type: Spontaneous
  Country: RU (occurrence: RU)
  Receive Date: 20180117
  Receipt Date: 20180117
  Transmission Date: 20180509
  Serious: Yes (Other)
  Sender: FDA-Public Use
  Company Number: RU-SA-2018SA007237

PATIENT

DRUGS (2)
  1. SOLOSTAR [Suspect]
     Active Substance: DEVICE
  2. TOUJEO [Suspect]
     Active Substance: INSULIN GLARGINE
     Route: 051

REACTIONS (7)
  - Angiopathy [Unknown]
  - Blood glucose increased [Unknown]
  - General physical health deterioration [Unknown]
  - Apparent life threatening event [Unknown]
  - Disease complication [Unknown]
  - Poor quality drug administered [Unknown]
  - Eye disorder [Unknown]
